FAERS Safety Report 9139870 (Version 2)
Quarter: 2013Q1

REPORT INFORMATION
  Report Type: Report from Study
  Country: TH (occurrence: TH)
  Receive Date: 20130305
  Receipt Date: 20130313
  Transmission Date: 20140127
  Serious: Yes (Hospitalization)
  Sender: FDA-Public Use
  Company Number: TH-009507513-1303THA001332

PATIENT
  Age: 72 Year
  Sex: Male

DRUGS (2)
  1. BOCEPREVIR [Suspect]
  2. RIBAVIRIN [Suspect]

REACTIONS (2)
  - Tooth abscess [Unknown]
  - Anaemia [Unknown]
